FAERS Safety Report 12200909 (Version 1)
Quarter: 2016Q1

REPORT INFORMATION
  Report Type: Spontaneous
  Country: BR (occurrence: BR)
  Receive Date: 20160322
  Receipt Date: 20160322
  Transmission Date: 20160526
  Serious: Yes (Hospitalization, Other)
  Sender: FDA-Public Use
  Company Number: BR-ASTRAZENECA-2016SE29725

PATIENT
  Age: 42 Year
  Sex: Male
  Weight: 100 kg

DRUGS (11)
  1. CRESTOR [Suspect]
     Active Substance: ROSUVASTATIN CALCIUM
     Indication: BLOOD CHOLESTEROL ABNORMAL
     Route: 048
  2. VICTOZA [Concomitant]
     Active Substance: LIRAGLUTIDE
     Indication: TYPE 2 DIABETES MELLITUS
     Route: 058
     Dates: start: 2014
  3. ZYLORIC [Concomitant]
     Active Substance: ALLOPURINOL
     Indication: DIABETES MELLITUS
     Route: 048
     Dates: start: 201509
  4. CRESTOR [Suspect]
     Active Substance: ROSUVASTATIN CALCIUM
     Indication: BLOOD CHOLESTEROL ABNORMAL
     Route: 048
     Dates: start: 2004, end: 20160216
  5. ARADOIS H [Concomitant]
     Active Substance: HYDROCHLOROTHIAZIDE\LOSARTAN POTASSIUM
     Indication: BLOOD PRESSURE MANAGEMENT
     Dosage: 100/25 MG, EVERY DAY
     Route: 048
     Dates: start: 2004
  6. ARADOIS H [Concomitant]
     Active Substance: HYDROCHLOROTHIAZIDE\LOSARTAN POTASSIUM
     Indication: DIURETIC THERAPY
     Dosage: 100/25 MG, EVERY DAY
     Route: 048
     Dates: start: 2004
  7. GLIFAGE [Concomitant]
     Active Substance: METFORMIN HYDROCHLORIDE
     Indication: TYPE 2 DIABETES MELLITUS
     Route: 048
     Dates: start: 2006
  8. VITAMIN B3 [Concomitant]
     Active Substance: NIACIN
     Indication: SUPPLEMENTATION THERAPY
     Dosage: 30000 UI , ONCE A WEEK
     Route: 048
  9. ASPIRIN. [Concomitant]
     Active Substance: ASPIRIN
     Indication: ARTERIAL OCCLUSIVE DISEASE
     Dosage: EVERY MORNING
     Route: 048
  10. CRESTOR [Suspect]
     Active Substance: ROSUVASTATIN CALCIUM
     Indication: BLOOD CHOLESTEROL ABNORMAL
     Route: 048
     Dates: start: 2000, end: 2004
  11. INVOKANA [Concomitant]
     Active Substance: CANAGLIFLOZIN
     Indication: TYPE 2 DIABETES MELLITUS
     Route: 048
     Dates: start: 201509

REACTIONS (4)
  - Diabetes mellitus [Recovered/Resolved]
  - Arterial occlusive disease [Recovered/Resolved]
  - Blood glucose increased [Recovered/Resolved]
  - Weight decreased [Not Recovered/Not Resolved]

NARRATIVE: CASE EVENT DATE: 2004
